FAERS Safety Report 9491073 (Version 1)
Quarter: 2013Q3

REPORT INFORMATION
  Report Type: Spontaneous
  Country: FR (occurrence: FR)
  Receive Date: 20130830
  Receipt Date: 20130830
  Transmission Date: 20140515
  Serious: Yes (Hospitalization)
  Sender: FDA-Public Use
  Company Number: FR-PFIZER INC-2013248784

PATIENT
  Age: 30 Year
  Sex: Female

DRUGS (2)
  1. MINOXIDIL [Suspect]
     Indication: HYPERTENSION
     Dosage: 10 MG/DAY, UNSPECIFIED FREQUENCY
     Route: 048
     Dates: start: 20130718, end: 20130801
  2. CELLCEPT [Concomitant]
     Dosage: UNK
     Dates: start: 201306, end: 20130806

REACTIONS (1)
  - Neutropenia [Recovered/Resolved]
